FAERS Safety Report 23627048 (Version 1)
Quarter: 2024Q1

REPORT INFORMATION
  Report Type: Report from Study
  Country: US (occurrence: US)
  Receive Date: 20240313
  Receipt Date: 20240313
  Transmission Date: 20240410
  Serious: No
  Sender: FDA-Public Use
  Company Number: US-SPRINGWORKS THERAPEUTICS-SW-001192

PATIENT
  Sex: Female

DRUGS (2)
  1. NIROGACESTAT [Suspect]
     Active Substance: NIROGACESTAT
     Indication: Connective tissue neoplasm
     Dosage: 100 MILLIGRAM, TID
     Route: 048
  2. NIROGACESTAT [Suspect]
     Active Substance: NIROGACESTAT
     Indication: Soft tissue neoplasm

REACTIONS (6)
  - Visual impairment [Unknown]
  - Abdominal discomfort [Unknown]
  - Restless legs syndrome [Unknown]
  - Menopause [Unknown]
  - Product dose omission issue [Unknown]
  - Drug interaction [Unknown]
